FAERS Safety Report 9296859 (Version 1)
Quarter: 2013Q2

REPORT INFORMATION
  Report Type: Spontaneous
  Country: US (occurrence: US)
  Receive Date: 20130517
  Receipt Date: 20130517
  Transmission Date: 20140414
  Serious: No
  Sender: FDA-Public Use
  Company Number: US-PFIZER INC-2013151900

PATIENT
  Age: 57 Year
  Sex: Female
  Weight: 63.49 kg

DRUGS (6)
  1. CARVEDILOL [Concomitant]
     Indication: HYPERTENSION
     Dosage: UNK
  2. BUSPIRONE [Concomitant]
     Indication: ANXIETY
     Dosage: UNK
  3. LYRICA [Suspect]
     Indication: PAIN IN EXTREMITY
     Dosage: 100 MG, 2X/DAY
     Dates: start: 201304, end: 201305
  4. LYRICA [Suspect]
     Indication: ARTHRALGIA
  5. AMLODIPINE [Concomitant]
     Indication: HYPERTENSION
     Dosage: 10 MG, UNK
  6. LOSARTAN POTASSIUM W/HYDROCHLOROTHIAZIDE [Concomitant]
     Indication: HYPERTENSION
     Dosage: UNK

REACTIONS (8)
  - Off label use [Unknown]
  - Arthralgia [Not Recovered/Not Resolved]
  - Pain in extremity [Not Recovered/Not Resolved]
  - Joint range of motion decreased [Not Recovered/Not Resolved]
  - Agitation [Not Recovered/Not Resolved]
  - Tension [Not Recovered/Not Resolved]
  - Pre-existing condition improved [Unknown]
  - Therapeutic response unexpected [Unknown]
